FAERS Safety Report 15705698 (Version 3)
Quarter: 2020Q2

REPORT INFORMATION
  Report Type: Spontaneous
  Country: CN (occurrence: CN)
  Receive Date: 20181210
  Receipt Date: 20200605
  Transmission Date: 20200713
  Serious: Yes (Death, Other)
  Sender: FDA-Public Use
  Company Number: CN-ASTRAZENECA-2018SF60022

PATIENT
  Sex: Male
  Weight: 60 kg

DRUGS (2)
  1. SYMBICORT [Suspect]
     Active Substance: BUDESONIDE\FORMOTEROL FUMARATE DIHYDRATE
     Indication: ASTHMA
     Dosage: 160 UG/4.5 UG/60 PUFF
     Route: 055
  2. SYMBICORT [Suspect]
     Active Substance: BUDESONIDE\FORMOTEROL FUMARATE DIHYDRATE
     Indication: CHRONIC OBSTRUCTIVE PULMONARY DISEASE
     Dosage: 160 UG/4.5 UG/60 PUFF
     Route: 055

REACTIONS (5)
  - Death [Fatal]
  - Fall [Unknown]
  - Rash [Unknown]
  - Heart rate increased [Unknown]
  - Asthma [Unknown]
